FAERS Safety Report 12984063 (Version 1)
Quarter: 2016Q4

REPORT INFORMATION
  Report Type: Other
  Country: DK (occurrence: DK)
  Receive Date: 20161129
  Receipt Date: 20161129
  Transmission Date: 20170207
  Serious: Yes (Hospitalization, Other)
  Sender: FDA-Public Use
  Company Number: DK-SYMPLMED PHARMACEUTICALS-2016SYMPLMED000357

PATIENT

DRUGS (7)
  1. COVERSYL NOVUM [Suspect]
     Active Substance: PERINDOPRIL
     Indication: OFF LABEL USE
     Dosage: 2.5 MG, QD
     Route: 065
     Dates: start: 20061031, end: 20131211
  2. MAGNYL                             /00002701/ [Concomitant]
     Active Substance: ASPIRIN
     Indication: PRODUCT USED FOR UNKNOWN INDICATION
     Dosage: UNK
     Dates: start: 20061031
  3. MAREVAN [Concomitant]
     Active Substance: WARFARIN SODIUM
     Indication: PRODUCT USED FOR UNKNOWN INDICATION
     Dosage: UNK
     Dates: start: 200512, end: 20080606
  4. CORDARONE [Concomitant]
     Active Substance: AMIODARONE HYDROCHLORIDE
     Indication: ATRIAL FIBRILLATION
     Dosage: 400 MG, QD
     Dates: end: 20061004
  5. COVERSYL NOVUM [Suspect]
     Active Substance: PERINDOPRIL
     Indication: ATRIAL FIBRILLATION
     Dosage: 2.5 MG, QD
     Route: 065
     Dates: start: 20060729, end: 20061004
  6. METOPROLOL TARTRATE. [Concomitant]
     Active Substance: METOPROLOL TARTRATE
     Indication: ATRIAL FIBRILLATION
     Dosage: UNK
     Dates: start: 200512
  7. ATACAND [Concomitant]
     Active Substance: CANDESARTAN CILEXETIL
     Indication: PRODUCT USED FOR UNKNOWN INDICATION
     Dosage: 8 MG, QD
     Dates: start: 20061004, end: 20061031

REACTIONS (10)
  - Atrial fibrillation [Unknown]
  - Sensory disturbance [Unknown]
  - Peripheral coldness [Not Recovered/Not Resolved]
  - Burning sensation [Unknown]
  - Paraesthesia [Not Recovered/Not Resolved]
  - Dysphonia [Unknown]
  - Fine motor skill dysfunction [Unknown]
  - Muscular weakness [Unknown]
  - Polyneuropathy [Recovering/Resolving]
  - Erectile dysfunction [Recovered/Resolved]

NARRATIVE: CASE EVENT DATE: 2006
